FAERS Safety Report 5141237-6 (Version None)
Quarter: 2006Q4

REPORT INFORMATION
  Report Type: 
  Country: None (occurrence: None)
  Receive Date: 20061101
  Receipt Date: 20061019
  Transmission Date: 20070319
  Serious: Yes (Hospitalization)
  Sender: FDA-Public Use
  Company Number: US-ELI_LILLY_AND_COMPANY-US200610003604

PATIENT
  Age: 70 Year
  Sex: Female

DRUGS (6)
  1. HUMALOG [Suspect]
     Dates: start: 20060101
  2. BYETTA [Concomitant]
     Indication: DIABETES MELLITUS NON-INSULIN-DEPENDENT
     Dosage: 5 UG, 2/D
     Route: 058
     Dates: start: 20060701, end: 20060701
  3. BYETTA [Concomitant]
     Dosage: 10 UG, 2/D
     Route: 058
     Dates: start: 20060701, end: 20060920
  4. BYETTA [Concomitant]
     Dosage: 10 UG, EACH MORNING
     Dates: start: 20060921
  5. LANTUS [Concomitant]
     Dates: start: 20060101
  6. GLUCOTROL XL [Concomitant]

REACTIONS (4)
  - BASAL CELL CARCINOMA [None]
  - BLOOD GLUCOSE INCREASED [None]
  - HAEMOGLOBIN DECREASED [None]
  - SOMNOLENCE [None]
